FAERS Safety Report 6925892-3 (Version None)
Quarter: 2010Q3

REPORT INFORMATION
  Report Type: 
  Country: None (occurrence: None)
  Receive Date: 20100816
  Receipt Date: 20100810
  Transmission Date: 20110219
  Serious: Yes (Life-Threatening, Hospitalization)
  Sender: FDA-Public Use
  Company Number: BE-JNJCH-9511884

PATIENT
  Sex: Male
  Weight: 13.8 kg

DRUGS (1)
  1. CETIRIZINE HYDROCHLORIDE [Suspect]
     Indication: ATOPY
     Dosage: DAILY DOSE:180MG-FREQ:DAILY
     Route: 048

REACTIONS (8)
  - ACCIDENTAL OVERDOSE [None]
  - AGITATION [None]
  - CHROMATURIA [None]
  - ECZEMA [None]
  - IRRITABILITY [None]
  - PERIORBITAL OEDEMA [None]
  - RESTLESSNESS [None]
  - SOMNOLENCE [None]
